FAERS Safety Report 16278313 (Version 2)
Quarter: 2019Q3

REPORT INFORMATION
  Report Type: Spontaneous
  Country: DK (occurrence: DK)
  Receive Date: 20190506
  Receipt Date: 20190701
  Transmission Date: 20191004
  Serious: Yes (Other)
  Sender: FDA-Public Use
  Company Number: DK-MYLANLABS-2019M1043320

PATIENT
  Age: 41 Year
  Sex: Male

DRUGS (20)
  1. FEXOFENADINE [Concomitant]
     Active Substance: FEXOFENADINE HYDROCHLORIDE
     Indication: SEASONAL ALLERGY
     Dosage: 180 MILLIGRAM, BID
     Route: 065
  2. FLIXOTIDE [Concomitant]
     Active Substance: FLUTICASONE PROPIONATE
     Indication: PRODUCT USED FOR UNKNOWN INDICATION
     Dosage: UNK, BID (2 ACTUATIOS)
  3. METOMYLAN 50 MG DEPOTTABLETTER [Suspect]
     Active Substance: METOPROLOL SUCCINATE
     Indication: CARDIAC FAILURE
     Dosage: 50 MILLIGRAM, BID
     Route: 065
  4. ANTISTINA-PRIVIN [Concomitant]
     Indication: PRODUCT USED FOR UNKNOWN INDICATION
     Dosage: UNK
     Route: 047
  5. PROPOLAN [Concomitant]
     Indication: PRODUCT USED FOR UNKNOWN INDICATION
     Dosage: UNK, BID
     Route: 065
  6. CANDESARTAN. [Concomitant]
     Active Substance: CANDESARTAN
     Indication: PRODUCT USED FOR UNKNOWN INDICATION
     Dosage: 16 MILLIGRAM
     Route: 065
  7. MABLET [Concomitant]
     Indication: MUSCLE SPASMS
     Dosage: 2 DOSAGE FORM, QD
     Route: 065
  8. BRILIQUE [Concomitant]
     Active Substance: TICAGRELOR
     Indication: PRODUCT USED FOR UNKNOWN INDICATION
     Dosage: 90 MILLIGRAM, BID
     Route: 065
  9. EZETROL [Concomitant]
     Active Substance: EZETIMIBE
     Indication: PRODUCT USED FOR UNKNOWN INDICATION
     Dosage: UNK
     Route: 065
  10. ALLOPURINOL. [Concomitant]
     Active Substance: ALLOPURINOL
     Indication: GOUT
     Dosage: 500 MILLIGRAM, QD
     Route: 065
  11. CRESTOR [Concomitant]
     Active Substance: ROSUVASTATIN CALCIUM
     Indication: PRODUCT USED FOR UNKNOWN INDICATION
     Dosage: CURRENTLY PAUSED DUE TO REDUCED RENAL FUNCTION.
     Route: 065
  12. METOMYLAN 50 MG DEPOTTABLETTER [Suspect]
     Active Substance: METOPROLOL SUCCINATE
     Indication: CARDIAC DYSFUNCTION
     Dosage: UNK
     Dates: start: 20190618
  13. METOPROLOL SUCCINATE. [Suspect]
     Active Substance: METOPROLOL SUCCINATE
     Indication: CARDIAC DYSFUNCTION
  14. ATORVASTATIN TEVA [Concomitant]
     Active Substance: ATORVASTATIN
     Indication: PRODUCT USED FOR UNKNOWN INDICATION
     Dosage: 80 MILLIGRAM, QD (RECENTLY DISCONTINUED DUE TO ADVERSE EFFECT (STIFF LEGS))
     Route: 065
  15. FURIX (FUROSEMIDE) [Concomitant]
     Active Substance: FUROSEMIDE
     Indication: PRODUCT USED FOR UNKNOWN INDICATION
     Dosage: UNK UNK, TID (80 MG MORNING, 40 MG MIDDAY AND 40 MG AFTERNOON)
     Route: 065
  16. EPLERENON BLUEFISH [Concomitant]
     Indication: PRODUCT USED FOR UNKNOWN INDICATION
     Dosage: 25 MILLIGRAM, BID
     Route: 065
  17. CANDESARTAN. [Concomitant]
     Active Substance: CANDESARTAN
     Dosage: 24 MILLIGRAM (DOSE REDUCED TO 16 MG AT AN UNKNOWN DATE DUE TO REDUCED RENAL FUNCTION)
     Route: 065
  18. METOPROLOL SUCCINATE. [Suspect]
     Active Substance: METOPROLOL SUCCINATE
     Indication: CARDIAC FAILURE
     Dosage: UNK
     Dates: start: 20190614, end: 20190617
  19. Q10 [Concomitant]
     Indication: PRODUCT USED FOR UNKNOWN INDICATION
     Dosage: UNK
     Route: 065
  20. FISH OIL [Concomitant]
     Active Substance: FISH OIL
     Indication: HYPERCHOLESTEROLAEMIA
     Dosage: 400 MILLIGRAM, QD
     Route: 065

REACTIONS (13)
  - Malaise [Recovering/Resolving]
  - Oedema [Not Recovered/Not Resolved]
  - Weight increased [Recovering/Resolving]
  - Product substitution issue [Unknown]
  - Respiratory distress [Not Recovered/Not Resolved]
  - Renal impairment [Unknown]
  - Asthenia [Recovering/Resolving]
  - Hypoaesthesia [Recovering/Resolving]
  - Nausea [Recovering/Resolving]
  - Neck pain [Recovering/Resolving]
  - Fatigue [Recovering/Resolving]
  - Pain in extremity [Recovering/Resolving]
  - Dizziness [Recovering/Resolving]

NARRATIVE: CASE EVENT DATE: 20190614
